FAERS Safety Report 13094152 (Version 2)
Quarter: 2017Q1

REPORT INFORMATION
  Report Type: Spontaneous
  Country: US (occurrence: US)
  Receive Date: 20170106
  Receipt Date: 20170203
  Transmission Date: 20170428
  Serious: Yes (Death)
  Sender: FDA-Public Use
  Company Number: US-ASTELLAS-2017US000436

PATIENT
  Age: 79 Year
  Sex: Female

DRUGS (2)
  1. TARCEVA [Suspect]
     Active Substance: ERLOTINIB HYDROCHLORIDE
     Indication: NEOPLASM MALIGNANT
     Route: 048
     Dates: start: 20160729
  2. TARCEVA [Suspect]
     Active Substance: ERLOTINIB HYDROCHLORIDE
     Dosage: DOSE DECREASED, UNKNOWN FREQ.
     Route: 065
     Dates: start: 20160902

REACTIONS (3)
  - Headache [Unknown]
  - Vision blurred [Unknown]
  - Death [Fatal]

NARRATIVE: CASE EVENT DATE: 20161226
